FAERS Safety Report 23140029 (Version 1)
Quarter: 2023Q4

REPORT INFORMATION
  Report Type: Spontaneous
  Country: US (occurrence: US)
  Receive Date: 20231102
  Receipt Date: 20231102
  Transmission Date: 20240110
  Serious: No
  Sender: FDA-Public Use
  Company Number: US-PFIZER INC-202300348294

PATIENT
  Age: 63 Year
  Sex: Male

DRUGS (3)
  1. BOSULIF [Suspect]
     Active Substance: BOSUTINIB MONOHYDRATE
     Dosage: 400 MG, DAILY
     Dates: start: 20231011
  2. ASPIRIN [Concomitant]
     Active Substance: ASPIRIN
     Dosage: UNK
     Route: 048
  3. VITAMIN D3 [Concomitant]
     Active Substance: CHOLECALCIFEROL
     Dosage: UNK

REACTIONS (4)
  - Diarrhoea [Recovered/Resolved]
  - Upper respiratory tract infection [Recovered/Resolved]
  - Product administration error [Unknown]
  - Nausea [Recovered/Resolved]
